FAERS Safety Report 20922328 (Version 1)
Quarter: 2022Q2

REPORT INFORMATION
  Report Type: Spontaneous
  Country: CZ (occurrence: CZ)
  Receive Date: 20220607
  Receipt Date: 20220607
  Transmission Date: 20220721
  Serious: Yes (Other)
  Sender: FDA-Public Use
  Company Number: CZ-AstraZeneca-2022A200267

PATIENT

DRUGS (5)
  1. GOSERELIN [Suspect]
     Active Substance: GOSERELIN
     Indication: Breast cancer
     Dosage: 3.6MG UNKNOWN
     Route: 058
     Dates: start: 20170831
  2. ZOLADEX [Suspect]
     Active Substance: GOSERELIN ACETATE
     Indication: Breast cancer
     Dosage: UNK
     Route: 065
  3. LETROZOLE [Concomitant]
     Active Substance: LETROZOLE
     Indication: Product used for unknown indication
     Dosage: 2.5 MG, QD
     Route: 048
     Dates: start: 20170918
  4. RIBOCICLIB [Concomitant]
     Active Substance: RIBOCICLIB
     Indication: Product used for unknown indication
     Dosage: FOR 21 DAYS WITH A WEEKLY BREAK - 3 + 1 REGIMEN
     Route: 065
     Dates: start: 20170918
  5. DENOSUMAB [Concomitant]
     Active Substance: DENOSUMAB
     Indication: Product used for unknown indication
     Dosage: EVERY 28 DAYS
     Route: 065

REACTIONS (3)
  - Toxicity to various agents [Unknown]
  - Neutropenia [Unknown]
  - Transaminases increased [Unknown]
